FAERS Safety Report 18866949 (Version 5)
Quarter: 2023Q1

REPORT INFORMATION
  Report Type: Spontaneous
  Country: IT (occurrence: IT)
  Receive Date: 20210208
  Receipt Date: 20230118
  Transmission Date: 20230418
  Serious: Yes (Life-Threatening, Hospitalization, Other)
  Sender: FDA-Public Use
  Company Number: IT-CELLTRION INC.-2021IT001178

PATIENT

DRUGS (5)
  1. RITUXIMAB [Suspect]
     Active Substance: RITUXIMAB
     Indication: Immunosuppression
     Dosage: 1 G, EVERY 0.5 WEEK, LATEST DOSE BY FEB/2020.
     Route: 065
     Dates: start: 2017
  2. RITUXIMAB [Suspect]
     Active Substance: RITUXIMAB
     Dosage: 1 G, 2 WEEKS APART, 4 CYCLES IN TOTAL
     Route: 065
     Dates: start: 2017, end: 202002
  3. TOCILIZUMAB [Suspect]
     Active Substance: TOCILIZUMAB
     Indication: COVID-19
     Dosage: 800 MG
     Route: 042
  4. METHOTREXATE [Concomitant]
     Active Substance: METHOTREXATE
     Indication: Immunosuppression
     Dosage: 12.5 MG, QW
     Route: 065
     Dates: start: 2017
  5. PREDNISONE [Concomitant]
     Active Substance: PREDNISONE
     Indication: Immunosuppression
     Dosage: 10 MG, QD
     Route: 065
     Dates: start: 2017

REACTIONS (7)
  - COVID-19 [Recovered/Resolved]
  - Immunodeficiency [Unknown]
  - Post-acute COVID-19 syndrome [Unknown]
  - Humoral immune defect [Unknown]
  - Intentional product use issue [Unknown]
  - Off label use [Unknown]
  - Therapeutic response delayed [Unknown]
